FAERS Safety Report 8409308-6 (Version None)
Quarter: 2012Q2

REPORT INFORMATION
  Report Type: 
  Country: None (occurrence: None)
  Receive Date: 20120605
  Receipt Date: 20120530
  Transmission Date: 20120825
  Serious: Yes (Hospitalization, Other)
  Sender: FDA-Public Use
  Company Number: US-BIOGENIDEC-2011BI034765

PATIENT
  Age: 58 Year
  Sex: Female

DRUGS (3)
  1. AVONEX [Suspect]
     Indication: MULTIPLE SCLEROSIS
     Route: 030
     Dates: start: 19970702, end: 20030101
  2. AMPYRA [Concomitant]
     Dates: start: 20110301
  3. AVONEX [Suspect]
     Route: 030
     Dates: start: 20030101

REACTIONS (3)
  - NAUSEA [None]
  - FALL [None]
  - NON-HODGKIN'S LYMPHOMA [None]
